FAERS Safety Report 5833350-2 (Version None)
Quarter: 2008Q3

REPORT INFORMATION
  Report Type: 
  Country: None (occurrence: None)
  Receive Date: 20080805
  Receipt Date: 20080724
  Transmission Date: 20090109
  Serious: Yes (Hospitalization)
  Sender: FDA-Public Use
  Company Number: FR-ELI_LILLY_AND_COMPANY-FR200805005951

PATIENT
  Age: 59 Year
  Sex: Male
  Weight: 98 kg

DRUGS (7)
  1. ALIMTA [Suspect]
     Indication: LUNG NEOPLASM MALIGNANT
     Dosage: 500 MG/M2 (1000MG), ON DAY1=DAY 21
     Route: 042
  2. FOLIC ACID [Concomitant]
     Indication: VITAMIN SUPPLEMENTATION
     Dosage: UNK, UNKNOWN
     Route: 065
  3. VITAMIN B-12 [Concomitant]
     Indication: VITAMIN SUPPLEMENTATION
     Dosage: UNK, UNKNOWN
     Route: 065
  4. TEMERIT                            /01339101/ [Concomitant]
     Indication: HYPERTENSION
     Dosage: 5 MG (1 TABLET), UNKNOWN
     Route: 048
  5. OMEPRAZOLE [Concomitant]
     Indication: GASTROOESOPHAGEAL REFLUX DISEASE
     Dosage: 20 MG (1 TABLET), UNKNOWN
     Route: 048
  6. BROMAZEPAM [Concomitant]
     Dosage: 3 MG (1/2 TABLET OF 6MG), OTHER
     Route: 048
  7. CORTICOSTEROIDS [Concomitant]
     Indication: PROPHYLAXIS
     Dosage: UNK, UNKNOWN
     Route: 065

REACTIONS (1)
  - PURPURA NON-THROMBOCYTOPENIC [None]
